FAERS Safety Report 8470649-8 (Version None)
Quarter: 2012Q2

REPORT INFORMATION
  Report Type: 
  Country: None (occurrence: None)
  Receive Date: 20120627
  Receipt Date: 20120626
  Transmission Date: 20120825
  Serious: Yes (Other)
  Sender: FDA-Public Use
  Company Number: PHEH2010US03494

PATIENT
  Sex: Male

DRUGS (31)
  1. PREDNISONE TAB [Concomitant]
  2. FOLTX [Concomitant]
  3. MEGESTROL ACETATE [Concomitant]
     Dosage: 20 MG, QD
  4. ALOXI [Concomitant]
     Dosage: 0.25 MG,
  5. METOPROLOL TARTRATE [Concomitant]
  6. LUNESTA [Concomitant]
  7. PERIDEX [Concomitant]
  8. LIPITOR [Concomitant]
  9. RADIATION THERAPY [Concomitant]
  10. ZOMETA [Suspect]
     Indication: OSTEOPOROSIS
  11. TAXOTERE [Concomitant]
     Dosage: 140 MG,
  12. SIMVASTATIN [Concomitant]
  13. AMOXICILLIN [Concomitant]
  14. CASODEX [Concomitant]
     Dosage: 50 MG, QD
  15. LUPRON [Suspect]
  16. NEULASTA [Concomitant]
     Dosage: 6 MG
     Route: 058
  17. PEPCID [Concomitant]
  18. FLEXERIL [Concomitant]
  19. WARFARIN SODIUM [Concomitant]
  20. TORADOL [Concomitant]
  21. ASPIRIN [Concomitant]
  22. DARVOCET-N 50 [Concomitant]
  23. DICLOFENAC SODIUM [Concomitant]
  24. PERCOCET [Concomitant]
  25. DOLASETRON [Concomitant]
  26. CHEMOTHERAPEUTICS [Concomitant]
  27. ZOMETA [Suspect]
     Indication: PROSTATE CANCER
     Dosage: 4 MG, MONTHLY
     Dates: start: 20060301, end: 20090301
  28. TRELSTAR [Concomitant]
  29. PEN-VEE K [Concomitant]
  30. LOPRESSOR [Concomitant]
     Dosage: 25 MG, QD
  31. OXYCONTIN [Concomitant]
     Dosage: 10 MG, BID

REACTIONS (71)
  - PARAESTHESIA [None]
  - OSTEOARTHRITIS [None]
  - CHEST PAIN [None]
  - LEFT ATRIAL DILATATION [None]
  - DYSLIPIDAEMIA [None]
  - RADICULOPATHY [None]
  - HAEMORRHOIDAL HAEMORRHAGE [None]
  - FATIGUE [None]
  - DRY EYE [None]
  - INFECTION [None]
  - INJURY [None]
  - INTERVERTEBRAL DISC PROTRUSION [None]
  - HAEMORRHOIDS [None]
  - ANAEMIA [None]
  - MITRAL VALVE INCOMPETENCE [None]
  - MUSCLE SPASMS [None]
  - ORAL PAIN [None]
  - HYPOCALCAEMIA [None]
  - NIGHT SWEATS [None]
  - ABDOMINAL PAIN UPPER [None]
  - DISABILITY [None]
  - PULMONARY EMBOLISM [None]
  - BACK PAIN [None]
  - OEDEMA PERIPHERAL [None]
  - PATHOLOGICAL FRACTURE [None]
  - MYOCARDIAL INFARCTION [None]
  - SKIN CANCER [None]
  - ACTINIC KERATOSIS [None]
  - VARICOSE VEIN [None]
  - ARTHRALGIA [None]
  - GASTROINTESTINAL HAEMORRHAGE [None]
  - PERIODONTITIS [None]
  - EYE INFLAMMATION [None]
  - ANHEDONIA [None]
  - LYMPHADENOPATHY MEDIASTINAL [None]
  - ERECTILE DYSFUNCTION [None]
  - HYPERCHOLESTEROLAEMIA [None]
  - HOMOCYSTINAEMIA [None]
  - PAIN IN JAW [None]
  - HOT FLUSH [None]
  - OSTEONECROSIS OF JAW [None]
  - PAIN [None]
  - TRICUSPID VALVE INCOMPETENCE [None]
  - HYPERHOMOCYSTEINAEMIA [None]
  - PULMONARY VALVE INCOMPETENCE [None]
  - SUTURE RELATED COMPLICATION [None]
  - LEUKOPENIA [None]
  - HYPOAESTHESIA [None]
  - EXPOSED BONE IN JAW [None]
  - NERVE ROOT LESION [None]
  - ANXIETY [None]
  - AORTIC ARTERIOSCLEROSIS [None]
  - DYSPNOEA [None]
  - NEOPLASM MALIGNANT [None]
  - SUBCUTANEOUS HAEMATOMA [None]
  - SPINAL COLUMN STENOSIS [None]
  - BLOOD ALKALINE PHOSPHATASE INCREASED [None]
  - HYPERLIPIDAEMIA [None]
  - BONE LESION [None]
  - HILAR LYMPHADENOPATHY [None]
  - PAIN IN EXTREMITY [None]
  - INTERVERTEBRAL DISC DEGENERATION [None]
  - BONE PAIN [None]
  - DIASTOLIC DYSFUNCTION [None]
  - HEADACHE [None]
  - ROTATOR CUFF SYNDROME [None]
  - MUSCULOSKELETAL PAIN [None]
  - NEUTROPENIA [None]
  - INGUINAL HERNIA [None]
  - PULMONARY THROMBOSIS [None]
  - MASS [None]
